FAERS Safety Report 8242800-6 (Version None)
Quarter: 2012Q1

REPORT INFORMATION
  Report Type: 
  Country: None (occurrence: None)
  Receive Date: 20120329
  Receipt Date: 20120323
  Transmission Date: 20120608
  Serious: Yes (Hospitalization)
  Sender: FDA-Public Use
  Company Number: US-BAYER-2012-029541

PATIENT
  Age: 36 Year
  Sex: Female
  Weight: 66.213 kg

DRUGS (11)
  1. YAZ [Suspect]
  2. NAPROXEN [Concomitant]
     Dosage: 500 MG, UNK
     Route: 048
  3. FLEXERIL [Concomitant]
     Indication: MUSCLE STRAIN
  4. ALBUTEROL [Concomitant]
     Indication: DYSPNOEA
  5. AZITHROMYCIN [Concomitant]
     Dosage: 250 MG, UNK
     Route: 048
  6. ALBUTEROL [Concomitant]
     Indication: COUGH
     Route: 055
  7. GUAIFENESIN [Concomitant]
     Dosage: 600 MG, UNK
     Route: 048
  8. ALPRAZOLAM [Concomitant]
     Indication: ANXIETY
     Dosage: 0.25 MG, BID
     Route: 048
  9. NEOCON [Concomitant]
  10. BENZONATATE [Concomitant]
     Indication: COUGH
     Dosage: 100 MG, PRN
     Route: 048
  11. MORPHINE [Concomitant]

REACTIONS (2)
  - PULMONARY EMBOLISM [None]
  - DEEP VEIN THROMBOSIS [None]
